FAERS Safety Report 23095689 (Version 2)
Quarter: 2024Q2

REPORT INFORMATION
  Report Type: Report from Study
  Country: US (occurrence: US)
  Receive Date: 20231023
  Receipt Date: 20240527
  Transmission Date: 20240716
  Serious: No
  Sender: FDA-Public Use
  Company Number: US-002147023-NVSC2023US226277

PATIENT
  Sex: Female

DRUGS (1)
  1. ILARIS [Suspect]
     Active Substance: CANAKINUMAB
     Indication: Pyrexia
     Dosage: 50 MG, Q 4 WEEKS
     Route: 058
     Dates: start: 20231014

REACTIONS (6)
  - Abdominal pain upper [Unknown]
  - Pyrexia [Unknown]
  - Pain [Unknown]
  - Vomiting [Unknown]
  - Drug ineffective [Unknown]
  - Skin discomfort [Unknown]

NARRATIVE: CASE EVENT DATE: 20230101
